FAERS Safety Report 18521932 (Version 1)
Quarter: 2020Q4

REPORT INFORMATION
  Report Type: Spontaneous
  Country: US (occurrence: US)
  Receive Date: 20201119
  Receipt Date: 20201119
  Transmission Date: 20210114
  Serious: Yes (Hospitalization, Other)
  Sender: FDA-Public Use
  Company Number: US-009507513-2011USA007094

PATIENT
  Age: 62 Year
  Sex: Female
  Weight: 62 kg

DRUGS (24)
  1. CITALOPRAM [Suspect]
     Active Substance: CITALOPRAM HYDROBROMIDE
     Indication: BLOOD CHOLESTEROL ABNORMAL
     Dosage: 20 MG, UNK
     Route: 065
     Dates: start: 20140111, end: 20141231
  2. AMLODIPINE BESYLATE (+) HYDROCHLOROTHIAZIDE (+) VALSARTAN [Suspect]
     Active Substance: AMLODIPINE BESYLATE\HYDROCHLOROTHIAZIDE\VALSARTAN
     Indication: BLOOD PRESSURE ABNORMAL
     Dosage: 25 MILLIGRAM
     Route: 065
     Dates: start: 2013
  3. NORVASC [Suspect]
     Active Substance: AMLODIPINE BESYLATE
     Dosage: UNK
     Dates: start: 2004
  4. ATENOLOL. [Suspect]
     Active Substance: ATENOLOL
     Dosage: 25 MILLIGRAM
     Route: 065
  5. COZAAR [Suspect]
     Active Substance: LOSARTAN POTASSIUM
     Dosage: UNK
     Route: 065
     Dates: start: 20141101
  6. NORVASC [Suspect]
     Active Substance: AMLODIPINE BESYLATE
     Indication: HYPERTENSION
     Dosage: 5 MG, UNK
     Dates: start: 1999
  7. CITALOPRAM [Suspect]
     Active Substance: CITALOPRAM HYDROBROMIDE
     Dosage: 20 MG, UNK
     Route: 065
     Dates: start: 20141231, end: 20141231
  8. HYDROCHLOROTHIAZIDE. [Suspect]
     Active Substance: HYDROCHLOROTHIAZIDE
     Dosage: 25 MG, UNK
     Dates: start: 20150217
  9. PRINIVIL [Suspect]
     Active Substance: LISINOPRIL
     Dosage: UNK
     Route: 065
  10. ALPRAZOLAM. [Suspect]
     Active Substance: ALPRAZOLAM
     Indication: PANIC DISORDER
     Dosage: 0.25 MG, UNK
     Route: 065
  11. BYSTOLIC [Suspect]
     Active Substance: NEBIVOLOL HYDROCHLORIDE
     Dosage: 10 MG, UNK
     Dates: start: 201401
  12. NORVASC [Suspect]
     Active Substance: AMLODIPINE BESYLATE
     Dosage: 5 MG UNK, UNK
  13. CADUET [Suspect]
     Active Substance: AMLODIPINE BESYLATE\ATORVASTATIN CALCIUM
     Indication: BLOOD PRESSURE ABNORMAL
     Dosage: 10 MG, UNK
     Route: 065
     Dates: start: 20141001
  14. DIAZEPAM. [Suspect]
     Active Substance: DIAZEPAM
     Dosage: UNK
     Route: 065
  15. ZYPREXA [Suspect]
     Active Substance: OLANZAPINE
     Dosage: UNK
     Route: 065
  16. ALPRAZOLAM. [Suspect]
     Active Substance: ALPRAZOLAM
     Indication: ANXIETY
     Dosage: UNK
     Route: 065
  17. BYSTOLIC [Suspect]
     Active Substance: NEBIVOLOL HYDROCHLORIDE
     Indication: BLOOD PRESSURE ABNORMAL
     Dosage: 10 MG, UNK
     Route: 065
     Dates: start: 201301
  18. NORVASC [Suspect]
     Active Substance: AMLODIPINE BESYLATE
     Dosage: 2.5 MG UNK, UNK
     Route: 048
     Dates: start: 2010
  19. ALPRAZOLAM. [Suspect]
     Active Substance: ALPRAZOLAM
     Indication: INSOMNIA
     Dosage: UNK
     Route: 065
  20. VALIUM [Suspect]
     Active Substance: DIAZEPAM
     Dosage: 2 MG, UNK
     Route: 065
     Dates: start: 20150330
  21. NORVASC [Suspect]
     Active Substance: AMLODIPINE BESYLATE
     Dosage: 10 MG, 1X/DAY
     Route: 048
     Dates: start: 20140301
  22. NORVASC [Suspect]
     Active Substance: AMLODIPINE BESYLATE
     Indication: BLOOD PRESSURE ABNORMAL
     Dosage: UNK (5/10MG )
     Route: 065
     Dates: start: 2012
  23. NORVASC [Suspect]
     Active Substance: AMLODIPINE BESYLATE
     Dosage: UNK
     Route: 048
     Dates: start: 1999, end: 2004
  24. BUMETANIDE. [Suspect]
     Active Substance: BUMETANIDE
     Indication: BLOOD PRESSURE ABNORMAL
     Dosage: 1 MG, UNK
     Route: 065
     Dates: start: 20140718

REACTIONS (23)
  - Somnolence [Unknown]
  - Nervous system disorder [Unknown]
  - Hypertension [Unknown]
  - Malaise [Unknown]
  - Product substitution issue [Unknown]
  - Myocardial infarction [Recovered/Resolved]
  - Product formulation issue [Unknown]
  - Face oedema [Not Recovered/Not Resolved]
  - Nausea [Unknown]
  - Tremor [Not Recovered/Not Resolved]
  - Cardiac disorder [Unknown]
  - Burning sensation [Unknown]
  - Dizziness [Unknown]
  - Gait disturbance [Unknown]
  - Diaphragmatic disorder [Not Recovered/Not Resolved]
  - Brain injury [Not Recovered/Not Resolved]
  - Dyspnoea [Unknown]
  - Face injury [Unknown]
  - Blood cholesterol increased [Unknown]
  - Anxiety [Unknown]
  - Pain [Unknown]
  - Cerebral disorder [Unknown]
  - Migraine [Unknown]

NARRATIVE: CASE EVENT DATE: 20150217
